FAERS Safety Report 6257173-8 (Version None)
Quarter: 2009Q3

REPORT INFORMATION
  Report Type: 
  Country: None (occurrence: None)
  Receive Date: 20090706
  Receipt Date: 20090624
  Transmission Date: 20100115
  Serious: Yes (Hospitalization)
  Sender: FDA-Public Use
  Company Number: FR-TEVA-200239USA

PATIENT
  Sex: Male

DRUGS (3)
  1. NALTREXONE HYDROCHLORIDE [Suspect]
     Indication: ALCOHOLISM
     Route: 048
     Dates: start: 20090220
  2. BUPRENORPHINE HCL [Interacting]
     Indication: DRUG DEPENDENCE
     Route: 048
     Dates: start: 20080701
  3. ZOPICLONE [Suspect]
     Route: 048
     Dates: start: 20080701

REACTIONS (2)
  - DRUG INTERACTION [None]
  - WITHDRAWAL SYNDROME [None]
